FAERS Safety Report 5143987-4 (Version None)
Quarter: 2006Q4

REPORT INFORMATION
  Report Type: 
  Country: None (occurrence: None)
  Receive Date: 20061106
  Receipt Date: 20061025
  Transmission Date: 20070319
  Serious: Yes (Other)
  Sender: FDA-Public Use
  Company Number: US-AVENTIS-200618826US

PATIENT
  Sex: Female

DRUGS (11)
  1. LANTUS [Suspect]
     Indication: DIABETES MELLITUS INSULIN-DEPENDENT
     Dates: start: 20030208
  2. LANTUS [Suspect]
     Dates: start: 20061001
  3. LISINOPRIL [Concomitant]
     Dosage: DOSE: UNK
  4. ASPIRIN [Concomitant]
  5. AMARYL [Concomitant]
     Dosage: DOSE: UNK
  6. ZOCOR [Concomitant]
     Dosage: DOSE: UNK
  7. FUROSEMIDE [Concomitant]
     Dosage: DOSE: UNK
  8. PRAVACHOL [Concomitant]
     Dosage: DOSE: UNK
  9. LOTEMAX [Concomitant]
     Dosage: DOSE: UNK
  10. ALPHAGAN P [Concomitant]
     Indication: GLAUCOMA
     Dosage: DOSE: UNK
  11. XALATAN                            /01297301/ [Concomitant]
     Indication: GLAUCOMA
     Dosage: DOSE: UNK

REACTIONS (10)
  - BLINDNESS [None]
  - BLINDNESS UNILATERAL [None]
  - DIABETIC RETINOPATHY [None]
  - EYE IRRITATION [None]
  - GLAUCOMA [None]
  - GLYCOSYLATED HAEMOGLOBIN INCREASED [None]
  - HYPERGLYCAEMIA [None]
  - OCULAR HYPERAEMIA [None]
  - THERAPY NON-RESPONDER [None]
  - VISUAL ACUITY REDUCED [None]
